FAERS Safety Report 4312460-5 (Version None)
Quarter: 2004Q1

REPORT INFORMATION
  Report Type: 
  Country: None (occurrence: None)
  Receive Date: 20040303
  Receipt Date: 20040218
  Transmission Date: 20041129
  Serious: Yes (Hospitalization)
  Sender: FDA-Public Use
  Company Number: 2003JP006016

PATIENT
  Age: 38 Year
  Sex: Male
  Weight: 76 kg

DRUGS (10)
  1. PROGRAF [Suspect]
     Indication: RENAL TRANSPLANT
     Dosage: SEE IMAGE
     Route: 048
  2. GRANDAXIN (TOFISOPAM) [Suspect]
     Dosage: ORAL
     Route: 048
     Dates: start: 20021201, end: 20030201
  3. PREDNISOLONE [Concomitant]
  4. IMURAN [Concomitant]
  5. LONGES (LISINOPRIL) TABLET [Concomitant]
  6. BLOPRESS (CANDESARTAN CILEXETIL)TABLET [Concomitant]
  7. ADALAT - SLOW RELEASE TABLET [Concomitant]
  8. LIPOVAS ^BANYU^ (SIMVASTATIN) TABLET [Concomitant]
  9. URINORM (BENZBROMARONE) TABLET [Concomitant]
  10. FAMOTIDINE [Concomitant]

REACTIONS (4)
  - AUTONOMIC NERVOUS SYSTEM IMBALANCE [None]
  - DIABETES MELLITUS [None]
  - DRUG INTERACTION [None]
  - DRUG LEVEL INCREASED [None]
